FAERS Safety Report 12160618 (Version 1)
Quarter: 2016Q1

REPORT INFORMATION
  Report Type: Spontaneous
  Country: DE (occurrence: DE)
  Receive Date: 20160308
  Receipt Date: 20160308
  Transmission Date: 20160526
  Serious: Yes (Other)
  Sender: FDA-Public Use
  Company Number: DE-PFIZER INC-2016138214

PATIENT
  Sex: Female

DRUGS (1)
  1. MINPROG [Suspect]
     Active Substance: ALPROSTADIL
     Dosage: UNK

REACTIONS (1)
  - Uterine rupture [Unknown]

NARRATIVE: CASE EVENT DATE: 2005
